FAERS Safety Report 25444979 (Version 1)
Quarter: 2025Q2

REPORT INFORMATION
  Report Type: Spontaneous
  Country: US (occurrence: None)
  Receive Date: 20250616
  Receipt Date: 20250616
  Transmission Date: 20250716
  Serious: Yes (Other)
  Sender: FDA-CTU
  Company Number: None

PATIENT
  Age: 82 Year
  Sex: Male
  Weight: 94.5 kg

DRUGS (13)
  1. JARDIANCE [Suspect]
     Active Substance: EMPAGLIFLOZIN
     Indication: Cardiac failure congestive
     Route: 048
     Dates: start: 20250213, end: 20250213
  2. ROSUVASTATIN [Concomitant]
     Active Substance: ROSUVASTATIN
  3. XARELTO [Concomitant]
     Active Substance: RIVAROXABAN
  4. METOPROLOL [Concomitant]
     Active Substance: METOPROLOL
  5. SYNTHROID [Concomitant]
     Active Substance: LEVOTHYROXINE SODIUM
  6. FAMOTIDINE CALCIUM [Concomitant]
  7. SPIRONOLACTONE [Concomitant]
     Active Substance: SPIRONOLACTONE
  8. BUMETANIDE [Concomitant]
     Active Substance: BUMETANIDE
  9. MONTELUKAST [Concomitant]
     Active Substance: MONTELUKAST
  10. DEVICE [Concomitant]
     Active Substance: DEVICE
  11. VITAMIN D [Concomitant]
     Active Substance: VITAMIN D NOS
  12. VITAMIN B12 [Concomitant]
     Active Substance: CYANOCOBALAMIN
  13. IRON [Concomitant]
     Active Substance: IRON

REACTIONS (2)
  - Confusional state [None]
  - Feeling abnormal [None]

NARRATIVE: CASE EVENT DATE: 20250213
